FAERS Safety Report 6325888-9 (Version None)
Quarter: 2009Q3

REPORT INFORMATION
  Report Type: 
  Country: None (occurrence: None)
  Receive Date: 20090824
  Receipt Date: 20090811
  Transmission Date: 20100115
  Serious: Yes (Other)
  Sender: FDA-Public Use
  Company Number: US-MERCK-0908USA03427

PATIENT
  Sex: Female

DRUGS (1)
  1. FOSAMAX PLUS D [Suspect]
     Indication: OSTEOPOROSIS
     Route: 048
     Dates: start: 20070401

REACTIONS (4)
  - JOINT CREPITATION [None]
  - NEOPLASM MALIGNANT [None]
  - OSTEOPOROSIS [None]
  - PAIN IN JAW [None]
